FAERS Safety Report 10758486 (Version 1)
Quarter: 2015Q1

REPORT INFORMATION
  Report Type: Spontaneous
  Country: US (occurrence: US)
  Receive Date: 20150203
  Receipt Date: 20150203
  Transmission Date: 20150721
  Serious: Yes (Death)
  Sender: FDA-Public Use
  Company Number: US-BAYER-2015-014042

PATIENT
  Age: 78 Year
  Sex: Female

DRUGS (3)
  1. BAYER LOW DOSE [Suspect]
     Active Substance: ASPIRIN
     Indication: ANTICOAGULANT THERAPY
     Dosage: 1 DF, QD
  2. VIOXX [Concomitant]
     Active Substance: ROFECOXIB
  3. INSULIN [Concomitant]
     Active Substance: INSULIN NOS
     Dosage: UNK, UNK

REACTIONS (2)
  - Death [Fatal]
  - Medication error [Unknown]
